FAERS Safety Report 8328801 (Version 3)
Quarter: 2013Q4

REPORT INFORMATION
  Report Type: Spontaneous
  Country: US (occurrence: US)
  Receive Date: 20120110
  Receipt Date: 20131219
  Transmission Date: 20140711
  Serious: Yes (Hospitalization, Other)
  Sender: FDA-Public Use
  Company Number: US-BAYER-2012-002238

PATIENT
  Age: 25 Year
  Sex: Female
  Weight: 54.88 kg

DRUGS (11)
  1. YAZ [Suspect]
     Indication: CONTRACEPTION
     Dosage: UNK
     Route: 048
     Dates: start: 200801, end: 200911
  2. YAZ [Suspect]
     Indication: PREMENSTRUAL DYSPHORIC DISORDER
  3. YAZ [Suspect]
     Indication: PREMENSTRUAL SYNDROME
  4. MULTIVITAMIN [Concomitant]
     Dosage: UNK
     Route: 048
     Dates: start: 2004
  5. SERTRALINE [Concomitant]
     Indication: PREMENSTRUAL SYNDROME
     Dosage: 50 MG, UNK
     Route: 048
     Dates: start: 200910, end: 201010
  6. VITAMIN C [Concomitant]
     Dosage: UNK
     Route: 048
     Dates: start: 1998
  7. AMOXICILLIN W/CLAVULANIC ACID [Concomitant]
     Route: 048
  8. KETOCONAZOLE [Concomitant]
     Route: 061
  9. MUCINEX DM [Concomitant]
     Route: 048
  10. NEXIUM [Concomitant]
     Dosage: 40 MG, UNK
     Route: 048
  11. SUCRALFATE [Concomitant]
     Route: 048

REACTIONS (10)
  - Gallbladder disorder [None]
  - Cholecystitis [None]
  - Abdominal pain [None]
  - Dyspepsia [None]
  - Procedural pain [None]
  - Injury [None]
  - Emotional distress [None]
  - Anxiety [None]
  - Psychological trauma [None]
  - Biliary dyskinesia [None]
